FAERS Safety Report 19189703 (Version 1)
Quarter: 2021Q2

REPORT INFORMATION
  Report Type: Spontaneous
  Country: US (occurrence: US)
  Receive Date: 20210428
  Receipt Date: 20210428
  Transmission Date: 20210717
  Serious: Yes (Hospitalization, Other)
  Sender: FDA-Public Use
  Company Number: US-PFIZER INC-2021439536

PATIENT
  Age: 55 Year
  Sex: Female
  Weight: 94.3 kg

DRUGS (15)
  1. AMLODIPINE BESILATE [Suspect]
     Active Substance: AMLODIPINE BESYLATE
     Dosage: UNK
  2. SINEQUAN [Concomitant]
     Active Substance: DOXEPIN HYDROCHLORIDE
     Dosage: 150 MG
  3. MAXALT [Suspect]
     Active Substance: RIZATRIPTAN BENZOATE
     Dosage: 10 MG,  (AS DIRECTED)
     Route: 048
  4. ORENITRAM [Suspect]
     Active Substance: TREPROSTINIL
     Dosage: 3 MG, 2X/DAY [Q12H]
     Route: 048
  5. ATORVASTATIN CALCIUM. [Concomitant]
     Active Substance: ATORVASTATIN CALCIUM
     Dosage: 80 MG
  6. ORENITRAM [Suspect]
     Active Substance: TREPROSTINIL
     Indication: PULMONARY ARTERIAL HYPERTENSION
     Dosage: UNK
     Route: 048
     Dates: start: 20200213
  7. EFFEXOR [Concomitant]
     Active Substance: VENLAFAXINE HYDROCHLORIDE
     Dosage: 150 MG, (EXTENDED RELEASE)
  8. COZAAR [Suspect]
     Active Substance: LOSARTAN POTASSIUM
     Dosage: 50 MG, (QD)
     Route: 048
  9. ORENITRAM [Suspect]
     Active Substance: TREPROSTINIL
     Indication: PULMONARY ARTERIAL HYPERTENSION
     Dosage: UNK
     Route: 048
  10. OXCARBAZEPINE. [Suspect]
     Active Substance: OXCARBAZEPINE
     Dosage: 600 MG, 2X/DAY
     Route: 048
  11. VITAMIN D2 OLEOSA [Concomitant]
     Dosage: UNK
  12. ELAVIL [Suspect]
     Active Substance: AMITRIPTYLINE HYDROCHLORIDE
     Dosage: 200 MG, 1X/DAY [QHS]
     Route: 048
  13. ORENITRAM [Suspect]
     Active Substance: TREPROSTINIL
     Indication: PULMONARY ARTERIAL HYPERTENSION
     Dosage: UNK
     Route: 048
  14. SEROQUEL XR [Suspect]
     Active Substance: QUETIAPINE FUMARATE
     Dosage: 200 MG, 1X/DAY [QHS]
     Route: 048
  15. TOPROL XL [Suspect]
     Active Substance: METOPROLOL SUCCINATE
     Dosage: 25 MG, 1X/DAY
     Route: 048

REACTIONS (6)
  - Dizziness [Unknown]
  - Fall [Unknown]
  - Loss of consciousness [Unknown]
  - Syncope [Unknown]
  - Urinary incontinence [Unknown]
  - Dizziness postural [Unknown]

NARRATIVE: CASE EVENT DATE: 20210226
